FAERS Safety Report 14081824 (Version 1)
Quarter: 2017Q4

REPORT INFORMATION
  Report Type: Spontaneous
  Country: US (occurrence: US)
  Receive Date: 20171012
  Receipt Date: 20171012
  Transmission Date: 20180321
  Serious: No
  Sender: FDA-Public Use
  Company Number: US-MYLANLABS-2017070054

PATIENT
  Age: 52 Year
  Sex: Female

DRUGS (3)
  1. APRISO-ER [Concomitant]
     Indication: GASTROENTERITIS
     Dosage: UNK
     Dates: start: 201507
  2. CANASA [Concomitant]
     Active Substance: MESALAMINE
     Indication: GASTROENTERITIS
     Dosage: UNK
     Dates: start: 20160119
  3. CORTIFOAM [Suspect]
     Active Substance: HYDROCORTISONE ACETATE
     Indication: PROCTITIS ULCERATIVE
     Dosage: 1 DF,BID
     Route: 054
     Dates: start: 201701

REACTIONS (3)
  - Product leakage [Unknown]
  - Expired product administered [Unknown]
  - No adverse event [Not Recovered/Not Resolved]

NARRATIVE: CASE EVENT DATE: 201707
